FAERS Safety Report 21997819 (Version 4)
Quarter: 2023Q2

REPORT INFORMATION
  Report Type: Report from Study
  Country: US (occurrence: US)
  Receive Date: 20230216
  Receipt Date: 20230626
  Transmission Date: 20230721
  Serious: Yes (Other)
  Sender: FDA-Public Use
  Company Number: US-002147023-NVSC2023US035496

PATIENT
  Sex: Male

DRUGS (1)
  1. TABRECTA [Suspect]
     Active Substance: CAPMATINIB
     Indication: Product used for unknown indication
     Dosage: UNK
     Route: 065
     Dates: end: 20230612

REACTIONS (6)
  - Renal impairment [Unknown]
  - Deafness [Unknown]
  - Malaise [Unknown]
  - Fluid retention [Unknown]
  - Hypoacusis [Unknown]
  - Oedema peripheral [Unknown]
